FAERS Safety Report 15697486 (Version 1)
Quarter: 2018Q4

REPORT INFORMATION
  Report Type: Spontaneous
  Country: US (occurrence: US)
  Receive Date: 20181207
  Receipt Date: 20181207
  Transmission Date: 20190205
  Serious: Yes (Other)
  Sender: FDA-Public Use
  Company Number: US-009507513-1811USA011761

PATIENT
  Sex: Male

DRUGS (2)
  1. TEMODAR [Suspect]
     Active Substance: TEMOZOLOMIDE
     Indication: GLIOBLASTOMA
  2. ALPELISIB [Suspect]
     Active Substance: ALPELISIB
     Indication: GLIOBLASTOMA
     Dosage: 300 MILLIGRAM, DAILY

REACTIONS (1)
  - Malignant neoplasm progression [Unknown]
